FAERS Safety Report 9335370 (Version 1)
Quarter: 2013Q2

REPORT INFORMATION
  Report Type: Spontaneous
  Country: US (occurrence: US)
  Receive Date: 20130606
  Receipt Date: 20130606
  Transmission Date: 20140414
  Serious: Yes (Hospitalization, Other)
  Sender: FDA-Public Use
  Company Number: US-BIOGENIDEC-2013BI048680

PATIENT
  Age: 60 Year
  Sex: Female

DRUGS (15)
  1. TYSABRI [Suspect]
     Indication: MULTIPLE SCLEROSIS
     Dates: start: 20061106, end: 20130312
  2. BACLOFEN [Concomitant]
     Dates: start: 2003
  3. PROVERA [Concomitant]
  4. RELAFEN [Concomitant]
     Dates: start: 2010
  5. CRANBERRY [Concomitant]
     Dates: start: 2009
  6. FISH OIL [Concomitant]
     Dates: start: 2009
  7. GLUCOSAMINE [Concomitant]
     Dates: start: 2009
  8. IRON [Concomitant]
     Dates: start: 2003
  9. VITAMIN C [Concomitant]
     Dates: start: 2003
  10. PROTONIX [Concomitant]
     Dates: start: 2003
  11. VALTREX [Concomitant]
     Dates: start: 2007
  12. LEVOTHYROXINE [Concomitant]
     Dates: start: 2008
  13. VITAMIN D [Concomitant]
     Dates: start: 2009
  14. PREMARIN [Concomitant]
  15. AMPYRA [Concomitant]
     Indication: GAIT DISTURBANCE
     Dates: start: 2010, end: 201302

REACTIONS (4)
  - Psychogenic seizure [Unknown]
  - Sepsis [Unknown]
  - Renal impairment [Unknown]
  - Urinary tract infection [Unknown]
